FAERS Safety Report 5574961-1 (Version None)
Quarter: 2007Q4

REPORT INFORMATION
  Report Type: 
  Country: None (occurrence: None)
  Receive Date: 20071227
  Receipt Date: 20071217
  Transmission Date: 20080405
  Serious: Yes (Hospitalization)
  Sender: FDA-Public Use
  Company Number: B0497283A

PATIENT
  Age: 83 Year
  Sex: Female
  Weight: 52 kg

DRUGS (7)
  1. PAROXETINE HCL [Suspect]
     Dosage: 40MG PER DAY
     Route: 048
     Dates: start: 20061001, end: 20071101
  2. MORPHINE [Suspect]
     Route: 050
     Dates: start: 20071101, end: 20071101
  3. MORPHINE [Suspect]
     Route: 058
     Dates: start: 20071101, end: 20071101
  4. HEPARIN [Concomitant]
  5. IMOVANE [Concomitant]
  6. VOGALENE [Concomitant]
  7. FLECAINIDE ACETATE [Concomitant]
     Indication: EXTRASYSTOLES
     Dosage: 1TAB PER DAY
     Route: 048
     Dates: start: 20050101

REACTIONS (7)
  - ANAEMIA [None]
  - CONFUSIONAL STATE [None]
  - DRUG INTERACTION [None]
  - HALLUCINATION [None]
  - POST PROCEDURAL HAEMATOMA [None]
  - PSYCHOMOTOR HYPERACTIVITY [None]
  - TRANCE [None]
